FAERS Safety Report 9528298 (Version 1)
Quarter: 2013Q1

REPORT INFORMATION
  Report Type: Spontaneous
  Country: US (occurrence: None)
  Receive Date: 20130314
  Receipt Date: 20130314
  Transmission Date: 20140127
  Serious: Yes (Other)
  Sender: FDA-Public Use
  Company Number: 1211USA005585

PATIENT
  Age: 60 Year
  Sex: Female

DRUGS (3)
  1. PEGINTRON (PEGINTERFERON ALFA-2B) POWDER FOR INJECTION [Suspect]
     Indication: HEPATITIS C
     Dosage: 80/0.5, QW
     Dates: start: 20120312, end: 20130204
  2. RIBAVIRIN (RIBAVIRIN) TABLET, 200 MG [Suspect]
     Indication: HEPATITIS C
     Dosage: UNK
     Dates: start: 20120312, end: 20130204
  3. VICTRELIS (BOCEPREVIR) CAPSULE [Suspect]
     Indication: HEPATITIS C
     Dates: start: 20120801, end: 20121101

REACTIONS (15)
  - Anaemia [None]
  - Memory impairment [None]
  - Gait disturbance [None]
  - Fall [None]
  - Fracture [None]
  - Balance disorder [None]
  - Ataxia [None]
  - Chills [None]
  - Hair texture abnormal [None]
  - Alopecia [None]
  - Pruritus [None]
  - Haemorrhage [None]
  - Panic attack [None]
  - Drug dose omission [None]
  - Product quality issue [None]
